FAERS Safety Report 6489878-8 (Version None)
Quarter: 2009Q4

REPORT INFORMATION
  Report Type: 
  Country: None (occurrence: None)
  Receive Date: 20091211
  Receipt Date: 20091202
  Transmission Date: 20100525
  Serious: Yes (Other)
  Sender: FDA-Public Use
  Company Number: US-JNJFOC-20091201289

PATIENT
  Age: 57 Year
  Sex: Male

DRUGS (5)
  1. PREZISTA [Suspect]
     Indication: HIV INFECTION
     Route: 048
  2. TRUVADA [Suspect]
     Indication: HIV INFECTION
     Route: 065
  3. RALTEGRAVIR [Suspect]
     Indication: HIV INFECTION
     Route: 065
  4. ELVITEGRAVIR [Suspect]
     Indication: HIV INFECTION
     Route: 065
  5. NORVIR [Concomitant]
     Indication: HIV INFECTION

REACTIONS (2)
  - BLOOD TRIGLYCERIDES INCREASED [None]
  - GLOMERULAR FILTRATION RATE DECREASED [None]
